FAERS Safety Report 7933602-6 (Version None)
Quarter: 2011Q4

REPORT INFORMATION
  Report Type: 
  Country: None (occurrence: None)
  Receive Date: 20111122
  Receipt Date: 20111110
  Transmission Date: 20120403
  Serious: Yes (Other)
  Sender: FDA-Public Use
  Company Number: FR-ROCHE-1005272

PATIENT
  Sex: Female

DRUGS (6)
  1. CYCLOPHOSPHAMIDE [Suspect]
     Indication: BREAST CANCER
     Dosage: EVERY 21 DAY
  2. LEVOTHYROXINE SODIUM [Concomitant]
     Route: 048
  3. HERCEPTIN [Suspect]
     Indication: BREAST CANCER
     Route: 042
     Dates: start: 20110505, end: 20110915
  4. TAXOTERE [Suspect]
     Indication: BREAST CANCER
  5. EPIRUBICIN HYDROCHLORIDE [Suspect]
     Indication: BREAST CANCER
     Dosage: EVERY 21 DAY
  6. FLUOROURACIL [Suspect]
     Indication: BREAST CANCER
     Dosage: EVERY 21 DAY

REACTIONS (1)
  - OPTIC ISCHAEMIC NEUROPATHY [None]
